FAERS Safety Report 6965916-0 (Version None)
Quarter: 2010Q3

REPORT INFORMATION
  Report Type: 
  Country: None (occurrence: None)
  Receive Date: 20100903
  Receipt Date: 20100823
  Transmission Date: 20110219
  Serious: Yes (Other)
  Sender: FDA-Public Use
  Company Number: US-PFIZER INC-2010106710

PATIENT
  Sex: Female
  Weight: 63.492 kg

DRUGS (3)
  1. LYRICA [Suspect]
     Indication: FIBROMYALGIA
     Dosage: 150 MG, 4X/DAY
     Route: 048
     Dates: start: 20090101
  2. LYRICA [Suspect]
     Indication: CONVULSION
  3. LYRICA [Suspect]
     Indication: PAIN

REACTIONS (4)
  - GALLBLADDER OPERATION [None]
  - REYE'S SYNDROME [None]
  - WEIGHT DECREASED [None]
  - WITHDRAWAL SYNDROME [None]
